FAERS Safety Report 13020350 (Version 3)
Quarter: 2017Q1

REPORT INFORMATION
  Report Type: Spontaneous
  Country: US (occurrence: US)
  Receive Date: 20161212
  Receipt Date: 20170327
  Transmission Date: 20170428
  Serious: Yes (Hospitalization, Other)
  Sender: FDA-Public Use
  Company Number: US-009507513-1612USA001836

PATIENT
  Age: 66 Year
  Sex: Male
  Weight: 100 kg

DRUGS (27)
  1. ZEPATIER [Suspect]
     Active Substance: ELBASVIR\GRAZOPREVIR
     Indication: HEPATITIS C
     Dosage: 1 TABLET, QD
     Route: 048
     Dates: start: 20160609, end: 20160728
  2. NAPROSYN [Concomitant]
     Active Substance: NAPROXEN
     Dosage: 250 MG, BID, WITH BREAKFAST AND WITH DINNER
     Route: 048
  3. MIRALAX [Concomitant]
     Active Substance: POLYETHYLENE GLYCOL 3350
     Dosage: 17 G PO QD MIX IN 8 OZ. OF WATER, JUICE, SODA, COFFEE OR TEA PRIOR TO TAKING
     Route: 048
  4. ASPIRIN. [Concomitant]
     Active Substance: ASPIRIN
     Dosage: 81 MG, QD
     Route: 048
  5. LIDODERM [Concomitant]
     Active Substance: LIDOCAINE
     Indication: MUSCULOSKELETAL PAIN
     Dosage: 1 PATCH ONTO THE SKIN DAILY, PRN
     Route: 061
  6. ZEPATIER [Suspect]
     Active Substance: ELBASVIR\GRAZOPREVIR
     Dosage: UNK
     Dates: start: 20160803, end: 20160901
  7. LOTRISONE [Concomitant]
     Active Substance: BETAMETHASONE DIPROPIONATE\CLOTRIMAZOLE
     Dosage: UNK, BID
     Route: 061
  8. PROVENTIL HFA [Concomitant]
     Active Substance: ALBUTEROL SULFATE
     Indication: WHEEZING
     Dosage: 2 PUFFS EVERY 6 HOURS
  9. ROCALTROL [Concomitant]
     Active Substance: CALCITRIOL
     Dosage: 0.5 MICROGRAM, QD
     Route: 048
  10. CHRONULAC [Concomitant]
     Active Substance: LACTULOSE
     Dosage: 22.5 ML, QD
     Route: 048
  11. TOPROL XL [Concomitant]
     Active Substance: METOPROLOL SUCCINATE
     Dosage: 25 MG, QD
     Route: 048
  12. INSULIN HUMAN [Concomitant]
     Active Substance: INSULIN HUMAN
     Dosage: USE BEFORE MEALS
  13. RENVELA [Concomitant]
     Active Substance: SEVELAMER CARBONATE
     Dosage: 1600 MG, TID, WITH MEALS
     Route: 048
  14. PRAVACHOL [Concomitant]
     Active Substance: PRAVASTATIN SODIUM
     Dosage: 40 MG, QD
     Route: 048
  15. PRILOSEC [Concomitant]
     Active Substance: OMEPRAZOLE MAGNESIUM
     Dosage: 40 MG, QD
     Route: 048
  16. PERCOCET [Concomitant]
     Active Substance: ACETAMINOPHEN\OXYCODONE HYDROCHLORIDE
     Dosage: 1 TABLET PO EVERY 4 HOURS PRN
     Route: 048
  17. ZEPATIER [Suspect]
     Active Substance: ELBASVIR\GRAZOPREVIR
     Dosage: 2 DF, UNK
     Dates: start: 20160729, end: 20160802
  18. ZIAGEN [Concomitant]
     Active Substance: ABACAVIR SULFATE
     Dosage: 300 MG, BID
     Route: 048
  19. INSULIN HUMAN, ISOPHANE [Concomitant]
     Active Substance: INSULIN HUMAN
     Dosage: INJECTION UNDER HE SKIN, BID
     Route: 058
  20. LAMICTAL [Concomitant]
     Active Substance: LAMOTRIGINE
     Dosage: 100 MG, QD
     Route: 048
  21. OXYCONTIN [Concomitant]
     Active Substance: OXYCODONE HYDROCHLORIDE
     Dosage: 10MG PO EVERY 12 HOURS
     Route: 048
  22. KEPPRA [Concomitant]
     Active Substance: LEVETIRACETAM
     Dosage: 1000 MG, BID
     Route: 048
  23. FOLIC ACID (+) VITAMIN B COMPLEX [Concomitant]
     Dosage: 0.8 MG, QD
     Route: 048
  24. CELEXA [Concomitant]
     Active Substance: CITALOPRAM HYDROBROMIDE
     Dosage: 20 MG, QD
     Route: 048
  25. EPIVIR HBV [Concomitant]
     Active Substance: LAMIVUDINE
     Dosage: 25 MG, QD
     Route: 048
  26. MIDAZOLAM [Concomitant]
     Active Substance: MIDAZOLAM HYDROCHLORIDE
     Indication: SEIZURE
     Dosage: 3 SPRAYS EACH NOSTRIL, 0.1 ML/SPRAY PRN
     Route: 045
  27. ISENTRESS [Concomitant]
     Active Substance: RALTEGRAVIR POTASSIUM
     Dosage: 400 MG, BID
     Route: 048

REACTIONS (4)
  - Back pain [Unknown]
  - Osteomyelitis [Unknown]
  - Intervertebral disc degeneration [Unknown]
  - Overdose [Unknown]

NARRATIVE: CASE EVENT DATE: 20160619
